FAERS Safety Report 4588497-8 (Version None)
Quarter: 2005Q1

REPORT INFORMATION
  Report Type: 
  Country: None (occurrence: None)
  Receive Date: 20050216
  Receipt Date: 20050216
  Transmission Date: 20050727
  Serious: Yes (Other)
  Sender: FDA-Public Use
  Company Number: None

PATIENT
  Age: 6 Year
  Sex: Male
  Weight: 54.4316 kg

DRUGS (5)
  1. CONCERTA [Suspect]
     Indication: ATTENTION DEFICIT/HYPERACTIVITY DISORDER
     Dosage: 36 MG PO QAM   (1 DOSE)
     Route: 048
  2. MIRTAZAPINE [Concomitant]
  3. MONTELUKAST [Concomitant]
  4. QUETIAPINE FUMARATE [Concomitant]
  5. BUDESONIDE [Concomitant]

REACTIONS (6)
  - ABNORMAL BEHAVIOUR [None]
  - CONVERSION DISORDER [None]
  - CRYING [None]
  - INSOMNIA [None]
  - IRRITABILITY [None]
  - SCREAMING [None]
